FAERS Safety Report 7177341-0 (Version None)
Quarter: 2010Q4

REPORT INFORMATION
  Report Type: 
  Country: None (occurrence: None)
  Receive Date: 20101220
  Receipt Date: 20101213
  Transmission Date: 20110411
  Serious: Yes (Death)
  Sender: FDA-Public Use
  Company Number: AT-SANOFI-AVENTIS-2010SA072655

PATIENT
  Age: 68 Year
  Sex: Male
  Weight: 75 kg

DRUGS (7)
  1. JEVTANA KIT [Suspect]
     Indication: PROSTATE CANCER
     Route: 042
     Dates: start: 20101014, end: 20101014
  2. PREDNISOLONE [Concomitant]
     Route: 048
     Dates: start: 20101013, end: 20101028
  3. NORGESIC TABLETS [Concomitant]
     Dates: end: 20101028
  4. MYOCHOLINE ^GLENWOOD^ [Concomitant]
     Dates: end: 20101028
  5. ALNA [Concomitant]
     Route: 048
     Dates: end: 20101028
  6. NOVALGIN [Concomitant]
     Dates: start: 20101014, end: 20101028
  7. TRAMAL [Concomitant]
     Dates: start: 20101014, end: 20101028

REACTIONS (1)
  - COMPLETED SUICIDE [None]
